FAERS Safety Report 9025396 (Version 1)
Quarter: 2013Q1

REPORT INFORMATION
  Report Type: Spontaneous
  Country: BE (occurrence: BE)
  Receive Date: 20130122
  Receipt Date: 20130122
  Transmission Date: 20140127
  Serious: Yes (Hospitalization)
  Sender: FDA-Public Use
  Company Number: BE-B.I. PHARMACEUTICALS,INC./RIDGEFIELD-2013-BL-00033BL

PATIENT
  Age: 77 Year
  Sex: Male

DRUGS (5)
  1. PRADAXA [Suspect]
     Indication: ATRIAL FIBRILLATION
     Dosage: 300 MG
     Dates: start: 201210, end: 20121215
  2. PANTOMED [Concomitant]
  3. EMCONCOR [Concomitant]
  4. COVERSYL [Concomitant]
  5. ZOCOR [Concomitant]

REACTIONS (1)
  - Acute myocardial infarction [Recovered/Resolved with Sequelae]
